FAERS Safety Report 23407104 (Version 4)
Quarter: 2024Q1

REPORT INFORMATION
  Report Type: Report from Study
  Country: CA (occurrence: CA)
  Receive Date: 20240116
  Receipt Date: 20240206
  Transmission Date: 20240410
  Serious: Yes (Other)
  Sender: FDA-Public Use
  Company Number: CA-LUNDBECK-DKLU3072325

PATIENT
  Age: 42 Year
  Sex: Female

DRUGS (1)
  1. VYEPTI [Suspect]
     Active Substance: EPTINEZUMAB-JJMR
     Indication: Migraine
     Route: 041
     Dates: start: 20231026

REACTIONS (21)
  - Loss of consciousness [Unknown]
  - Choking [Unknown]
  - Hypoaesthesia [Unknown]
  - Musculoskeletal stiffness [Unknown]
  - Muscle spasms [Unknown]
  - Tremor [Unknown]
  - Back pain [Unknown]
  - Neck pain [Unknown]
  - Asthenia [Unknown]
  - Speech disorder [Unknown]
  - Confusional state [Unknown]
  - Dizziness [Unknown]
  - Vertigo [Unknown]
  - Pollakiuria [Unknown]
  - Dyskinesia [Unknown]
  - Headache [Unknown]
  - Eye swelling [Unknown]
  - Visual impairment [Unknown]
  - Therapeutic response shortened [Unknown]
  - Drug ineffective [Unknown]
  - Migraine [Unknown]
